FAERS Safety Report 14672472 (Version 1)
Quarter: 2018Q1

REPORT INFORMATION
  Report Type: Spontaneous
  Country: US (occurrence: US)
  Receive Date: 20180323
  Receipt Date: 20180323
  Transmission Date: 20180509
  Serious: No
  Sender: FDA-Public Use
  Company Number: US-PFIZER INC-2018118152

PATIENT
  Age: 25 Year
  Sex: Female
  Weight: 83.91 kg

DRUGS (1)
  1. LYRICA [Suspect]
     Active Substance: PREGABALIN
     Indication: FIBROMYALGIA
     Dosage: 300 MG, 2X/DAY (TWICE DAILY)
     Route: 048
     Dates: start: 201704

REACTIONS (6)
  - Off label use [Unknown]
  - Drug withdrawal syndrome [Not Recovered/Not Resolved]
  - Bronchitis [Not Recovered/Not Resolved]
  - Aphonia [Unknown]
  - Insomnia [Not Recovered/Not Resolved]
  - Nausea [Not Recovered/Not Resolved]

NARRATIVE: CASE EVENT DATE: 201704
